FAERS Safety Report 23073658 (Version 1)
Quarter: 2023Q4

REPORT INFORMATION
  Report Type: Spontaneous
  Country: MY (occurrence: None)
  Receive Date: 20231017
  Receipt Date: 20231017
  Transmission Date: 20240109
  Serious: Yes (Hospitalization)
  Sender: FDA-Public Use
  Company Number: MY-MICRO LABS LIMITED-ML2023-05870

PATIENT
  Age: 20 Year
  Sex: Female

DRUGS (2)
  1. MISOPROSTOL [Suspect]
     Active Substance: MISOPROSTOL
     Indication: Product used for unknown indication
     Dosage: SIX TABLETS OF MISOPROSTOL (200 MCG EACH) ORALLY AND ONE TABLET PER VAGINALLY
     Route: 048
  2. MISOPROSTOL [Suspect]
     Active Substance: MISOPROSTOL
     Indication: Product used for unknown indication
     Route: 067

REACTIONS (2)
  - Toxicity to various agents [Recovered/Resolved]
  - Exposure during pregnancy [Unknown]
